FAERS Safety Report 25438998 (Version 2)
Quarter: 2025Q3

REPORT INFORMATION
  Report Type: Spontaneous
  Country: GB (occurrence: GB)
  Receive Date: 20250616
  Receipt Date: 20250708
  Transmission Date: 20251020
  Serious: Yes (Disabling, Other)
  Sender: CIPLA
  Company Number: GB-MHRA-MED-202506031717539110-LKCPS

PATIENT

DRUGS (1)
  1. FINASTERIDE [Suspect]
     Active Substance: FINASTERIDE
     Indication: Alopecia
     Dosage: 12 DOSAGE FORM, QD (ONCE A NIGHT 12 PUFFS), SPRAY
     Route: 065
     Dates: start: 20250404, end: 20250414

REACTIONS (4)
  - Insomnia [Not Recovered/Not Resolved]
  - Medication error [Unknown]
  - Amnesia [Not Recovered/Not Resolved]
  - Brain fog [Unknown]

NARRATIVE: CASE EVENT DATE: 20250414
